FAERS Safety Report 10095907 (Version 2)
Quarter: 2014Q2

REPORT INFORMATION
  Report Type: Spontaneous
  Country: US (occurrence: US)
  Receive Date: 20140422
  Receipt Date: 20140422
  Transmission Date: 20141212
  Serious: No
  Sender: FDA-Public Use
  Company Number: US-GILEAD-2013-0073628

PATIENT
  Age: 64 Year
  Sex: Male
  Weight: 134.15 kg

DRUGS (14)
  1. LETAIRIS [Suspect]
     Indication: PULMONARY HYPERTENSION
     Dosage: 5 MG, QD
     Route: 048
     Dates: start: 20130320, end: 20130410
  2. ALLOPURINOL [Concomitant]
     Dosage: 300 MG, QD
     Route: 048
  3. ATORVASTATIN [Concomitant]
     Dosage: 10 MG, QD
     Route: 048
  4. BENAZEPRIL [Concomitant]
     Dosage: 20 MG, BID
     Route: 048
  5. CENTRUM                            /02217401/ [Concomitant]
  6. DOXAZOSIN [Concomitant]
     Dosage: 8 MG, QD
     Route: 048
  7. FUROSEMIDE [Concomitant]
     Dosage: 40 MG, BID
     Route: 048
  8. FUROSEMIDE [Concomitant]
     Dosage: UNK, BID
     Dates: start: 20130410
  9. JANUVIA [Concomitant]
     Dosage: 100 MG, QD
     Route: 048
  10. METOPROLOL SUCCINATE [Concomitant]
     Dosage: 25 MG, QD
     Route: 048
  11. WARFARIN [Concomitant]
     Dosage: 10 MG, WED, FRI, SUN
     Route: 048
  12. WARFARIN [Concomitant]
     Dosage: 7.5 MG, MON, TUE, THUR, SAT
  13. ADVAIR HFA [Concomitant]
  14. OXYGEN [Concomitant]
     Dosage: 2 L, PRN NOCTURNAL

REACTIONS (5)
  - Urinary retention [Recovered/Resolved]
  - Heart rate decreased [Unknown]
  - Oxygen saturation decreased [Unknown]
  - Rhinitis allergic [Unknown]
  - Fluid retention [Unknown]
